FAERS Safety Report 6252780-0 (Version None)
Quarter: 2009Q3

REPORT INFORMATION
  Report Type: 
  Country: None (occurrence: None)
  Receive Date: 20090701
  Receipt Date: 20090624
  Transmission Date: 20100115
  Serious: Yes (Hospitalization, Other)
  Sender: FDA-Public Use
  Company Number: US-ASTRAZENECA-2009UW17401

PATIENT
  Sex: Male

DRUGS (6)
  1. SEROQUEL [Suspect]
     Indication: INSOMNIA
     Dosage: LOWER UNKNOWN DOSE TO START
     Route: 048
     Dates: start: 20050101
  2. NEXIUM [Concomitant]
     Route: 048
     Dates: start: 20040601
  3. ALPRAZOLAM [Concomitant]
     Route: 048
     Dates: start: 20010101
  4. LYRICA [Concomitant]
  5. ZOCOR [Concomitant]
  6. WELLBUTRIN [Concomitant]

REACTIONS (4)
  - DEPRESSION [None]
  - FORMICATION [None]
  - TREMOR [None]
  - VIOLENCE-RELATED SYMPTOM [None]
